FAERS Safety Report 7797580-5 (Version None)
Quarter: 2011Q4

REPORT INFORMATION
  Report Type: 
  Country: None (occurrence: None)
  Receive Date: 20111005
  Receipt Date: 20111003
  Transmission Date: 20120403
  Serious: Yes (Hospitalization)
  Sender: FDA-Public Use
  Company Number: GB-JNJFOC-20110911810

PATIENT
  Age: 82 Year
  Sex: Female
  Weight: 60 kg

DRUGS (10)
  1. MAGNESIUM HYDROXIDE [Concomitant]
  2. ALENDRONIC ACID [Concomitant]
  3. ASPIRIN [Concomitant]
  4. CEFUROXIME [Concomitant]
  5. XARELTO [Suspect]
     Indication: THROMBOSIS PROPHYLAXIS
     Route: 048
     Dates: start: 20110831, end: 20110905
  6. MORPHINE SULFATE [Concomitant]
  7. SENNA [Concomitant]
  8. LEKOVIT CA [Concomitant]
  9. TEICOPLANIN [Concomitant]
  10. TRIMETHOPRIM [Concomitant]

REACTIONS (1)
  - RASH [None]
